FAERS Safety Report 8778206 (Version 1)
Quarter: 2012Q4

REPORT INFORMATION
  Report Type: 
  Country: PH (occurrence: PH)
  Receive Date: 20120912
  Receipt Date: 20120912
  Transmission Date: 20130627
  Serious: Yes (Death)
  Sender: FDA-Public Use
  Company Number: PH-BAXTER-2012BAX016661

PATIENT
  Age: 75 Year
  Sex: Female

DRUGS (2)
  1. DIANEAL-N PD-2 1.5% [Suspect]
     Indication: CONTINUOUS AMBULATORY PERITONEAL DIALYSIS
     Route: 033
     Dates: start: 20101111, end: 20120905
  2. DIANEAL-N PD-4 2.5 PD SOLUTION [Suspect]
     Indication: CONTINUOUS AMBULATORY PERITONEAL DIALYSIS
     Route: 033
     Dates: start: 20101111, end: 20120905

REACTIONS (1)
  - Cardio-respiratory arrest [Fatal]
